FAERS Safety Report 5769872-2 (Version None)
Quarter: 2008Q2

REPORT INFORMATION
  Report Type: 
  Country: None (occurrence: None)
  Receive Date: 20080613
  Receipt Date: 20080411
  Transmission Date: 20081010
  Serious: No
  Sender: FDA-Public Use
  Company Number: US-ABBOTT-08P-163-0447012-00

PATIENT
  Sex: Male
  Weight: 72.64 kg

DRUGS (3)
  1. HUMIRA [Suspect]
     Indication: CROHN'S DISEASE
     Route: 058
     Dates: start: 20080303
  2. PREDNISONE TAB [Suspect]
     Indication: CROHN'S DISEASE
     Dosage: 20 MG DAILY THEN 10 MG DAILY THEN 5 MG DIALY (UNIT DOSE)
     Route: 048
     Dates: start: 20080328, end: 20080414
  3. CHLORDIAZEPOXIDE [Concomitant]
     Indication: STRESS
     Route: 048

REACTIONS (3)
  - ABDOMINAL DISTENSION [None]
  - INJECTION SITE IRRITATION [None]
  - NAUSEA [None]
